FAERS Safety Report 5668462-X (Version None)
Quarter: 2008Q1

REPORT INFORMATION
  Report Type: 
  Country: None (occurrence: None)
  Receive Date: 20080315
  Receipt Date: 20080221
  Transmission Date: 20080703
  Serious: No
  Sender: FDA-Public Use
  Company Number: US-ABBOTT-08P-163-0439467-00

PATIENT
  Sex: Female
  Weight: 47.67 kg

DRUGS (5)
  1. HUMIRA [Suspect]
     Indication: CROHN'S DISEASE
     Route: 058
     Dates: start: 20080220
  2. HUMIRA [Suspect]
     Route: 058
     Dates: start: 20080206, end: 20080206
  3. ESOMEPRAZOLE MAGNESIUM [Concomitant]
     Indication: DYSPEPSIA
     Route: 048
     Dates: start: 20071101
  4. PREDNISONE [Concomitant]
     Indication: CROHN'S DISEASE
     Route: 048
     Dates: start: 20070801
  5. LYBREL [Concomitant]
     Indication: CONTRACEPTION
     Route: 048
     Dates: start: 20071101

REACTIONS (1)
  - ACCIDENTAL EXPOSURE [None]
